FAERS Safety Report 5984265-0 (Version None)
Quarter: 2008Q4

REPORT INFORMATION
  Report Type: 
  Country: None (occurrence: None)
  Receive Date: 20081208
  Receipt Date: 20081029
  Transmission Date: 20090506
  Serious: Yes (Disabling, Other)
  Sender: FDA-Public Use
  Company Number: GB-CELGENEUS-167-20484-08101917

PATIENT
  Age: 33 Year
  Sex: Female

DRUGS (5)
  1. INNOHEP [Suspect]
     Indication: DRUG USE FOR UNKNOWN INDICATION
     Route: 058
  2. INNOHEP [Suspect]
     Route: 058
  3. INNOHEP [Suspect]
     Route: 058
  4. CALCIUM [Concomitant]
     Indication: OSTEOPENIA
     Route: 065
  5. LAXATIVES [Concomitant]
     Indication: CONSTIPATION
     Route: 065

REACTIONS (5)
  - BACK PAIN [None]
  - BODY HEIGHT DECREASED [None]
  - DRUG EXPOSURE DURING PREGNANCY [None]
  - OSTEOPENIA [None]
  - STERNAL FRACTURE [None]
